FAERS Safety Report 6293510-6 (Version None)
Quarter: 2009Q3

REPORT INFORMATION
  Report Type: 
  Country: None (occurrence: None)
  Receive Date: 20090803
  Receipt Date: 20090722
  Transmission Date: 20100115
  Serious: Yes (Hospitalization)
  Sender: FDA-Public Use
  Company Number: DE-RANBAXY-2009RR-25650

PATIENT
  Age: 4 Year
  Sex: Male

DRUGS (2)
  1. CEFACLOR [Suspect]
     Indication: PNEUMONIA
     Dosage: UNK
     Route: 048
     Dates: start: 20090623, end: 20090627
  2. CEFACLOR [Suspect]
     Indication: OTITIS MEDIA

REACTIONS (2)
  - INCREASED TENDENCY TO BRUISE [None]
  - THROMBOCYTOPENIA [None]
